FAERS Safety Report 15139734 (Version 8)
Quarter: 2022Q2

REPORT INFORMATION
  Report Type: Spontaneous
  Country: US (occurrence: US)
  Receive Date: 20180713
  Receipt Date: 20220403
  Transmission Date: 20220721
  Serious: No
  Sender: FDA-Public Use
  Company Number: US-SA-2018SA178605

PATIENT
  Age: 14 Year
  Sex: Female

DRUGS (3)
  1. CEREZYME [Suspect]
     Active Substance: IMIGLUCERASE
     Indication: Gaucher^s disease
     Dosage: 5200 U, QOW
     Route: 041
     Dates: start: 20100308
  2. CEREZYME [Suspect]
     Active Substance: IMIGLUCERASE
     Dosage: 5200 U, QOW
     Route: 041
     Dates: start: 20151013
  3. CEREZYME [Suspect]
     Active Substance: IMIGLUCERASE
     Dosage: 6000 U, QOW
     Route: 042

REACTIONS (2)
  - Hypoacusis [Unknown]
  - Product dose omission issue [Unknown]
